FAERS Safety Report 4641267-4 (Version None)
Quarter: 2005Q2

REPORT INFORMATION
  Report Type: 
  Country: None (occurrence: None)
  Receive Date: 20050421
  Receipt Date: 20050412
  Transmission Date: 20051028
  Serious: Yes (Other)
  Sender: FDA-Public Use
  Company Number: US-JNJFOC-20050403953

PATIENT
  Sex: Female

DRUGS (1)
  1. ORTHO TRI-CYCLEN [Suspect]
     Indication: ENDOMETRIOSIS
     Dosage: CONTINUOUSLY- SKIPPING PLACEBO PILLS.
     Route: 049

REACTIONS (2)
  - INTENTIONAL MISUSE [None]
  - MALIGNANT MELANOMA [None]
